FAERS Safety Report 7689493-4 (Version None)
Quarter: 2011Q3

REPORT INFORMATION
  Report Type: 
  Country: None (occurrence: None)
  Receive Date: 20110817
  Receipt Date: 20110812
  Transmission Date: 20111222
  Serious: Yes (Other)
  Sender: FDA-Public Use
  Company Number: IT-AMGEN-ITASP2011041766

PATIENT
  Age: 24 Year
  Sex: Female

DRUGS (2)
  1. RABEPRAZOLE SODIUM [Concomitant]
  2. NPLATE [Suspect]
     Indication: PRODUCT USED FOR UNKNOWN INDICATION
     Dosage: 275 A?G, UNK
     Dates: start: 20110119, end: 20110702

REACTIONS (5)
  - ARTHRALGIA [None]
  - ABDOMINAL PAIN [None]
  - MYALGIA [None]
  - BONE PAIN [None]
  - HEADACHE [None]
